FAERS Safety Report 9468205 (Version 1)
Quarter: 2013Q3

REPORT INFORMATION
  Report Type: Spontaneous
  Country: ES (occurrence: None)
  Receive Date: 20130816
  Receipt Date: 20130816
  Transmission Date: 20140515
  Serious: Yes (Death)
  Sender: FDA-Public Use
  Company Number: KAD201308-000988

PATIENT
  Sex: Male

DRUGS (1)
  1. RIBAVARIN [Suspect]
     Indication: HEPATITIS C

REACTIONS (1)
  - Hepatic artery thrombosis [None]
